FAERS Safety Report 13150414 (Version 1)
Quarter: 2017Q1

REPORT INFORMATION
  Report Type: Report from Study
  Country: US (occurrence: US)
  Receive Date: 20170124
  Receipt Date: 20170124
  Transmission Date: 20170428
  Serious: No
  Sender: FDA-Public Use
  Company Number: US-AMGEN-USASL2017000614

PATIENT
  Age: 70 Year
  Sex: Female

DRUGS (1)
  1. REPATHA [Suspect]
     Active Substance: EVOLOCUMAB
     Indication: HYPERLIPIDAEMIA
     Dosage: 140 MG, TWICE PER MONTH
     Route: 065

REACTIONS (8)
  - Limb discomfort [Unknown]
  - Chills [Unknown]
  - Unevaluable event [Unknown]
  - Asthenia [Unknown]
  - Feeling abnormal [Unknown]
  - Tremor [Unknown]
  - Epistaxis [Unknown]
  - Back pain [Unknown]

NARRATIVE: CASE EVENT DATE: 20170105
